FAERS Safety Report 7033462-4 (Version None)
Quarter: 2010Q4

REPORT INFORMATION
  Report Type: 
  Country: None (occurrence: None)
  Receive Date: 20101007
  Receipt Date: 20100922
  Transmission Date: 20110411
  Serious: Yes (Other)
  Sender: FDA-Public Use
  Company Number: PHHY2010JP65719

PATIENT
  Age: 46 Year
  Sex: Female

DRUGS (2)
  1. IMATINIB [Suspect]
     Indication: CHRONIC MYELOID LEUKAEMIA
     Dosage: 300 MG/ DAY
  2. IMATINIB [Suspect]
     Dosage: 200 MG/ DAY

REACTIONS (2)
  - COLITIS ISCHAEMIC [None]
  - TREATMENT FAILURE [None]
